FAERS Safety Report 9032253 (Version 1)
Quarter: 2013Q1

REPORT INFORMATION
  Report Type: Report from Study
  Country: US (occurrence: US)
  Receive Date: 20130122
  Receipt Date: 20130122
  Transmission Date: 20140127
  Serious: No
  Sender: FDA-Public Use
  Company Number: US-VERTEX PHARMACEUTICALS INC.-2013-000910

PATIENT
  Age: 53 Year
  Sex: Male
  Weight: 113 kg

DRUGS (6)
  1. VX-950 (TELAPREVIR) [Suspect]
     Indication: HEPATITIS C
     Dosage: 750 MG, TID
     Route: 048
  2. PEGASYS [Suspect]
     Indication: HEPATITIS C
  3. RIBAPAK [Suspect]
     Indication: HEPATITIS C
     Dosage: 1000/ DAY
  4. SINGULAIR [Concomitant]
     Dosage: 10 MG, UNK
  5. ZYRTEC [Concomitant]
     Dosage: 10 MG, UNK
  6. HYDROCO/APAP [Concomitant]
     Dosage: 10-325 MG

REACTIONS (2)
  - Arthralgia [Unknown]
  - Haemorrhoids [Unknown]
